FAERS Safety Report 9523281 (Version 1)
Quarter: 2013Q1

REPORT INFORMATION
  Report Type: Spontaneous
  Country: US (occurrence: None)
  Receive Date: 20130305
  Receipt Date: 20130305
  Transmission Date: 20140127
  Serious: Yes (Hospitalization)
  Sender: FDA-Public Use
  Company Number: 163-21880-12072390

PATIENT
  Sex: Male

DRUGS (16)
  1. REVLIMID [Suspect]
     Indication: PLASMA CELL MYELOMA
     Dosage: 10 MG, 21 IN 21 D, PO
     Route: 048
     Dates: start: 20110815
  2. VITAMIN B-12 (CYANOCOBALAMIN) [Concomitant]
  3. COLACE (DOCUSATE SODIUM) [Concomitant]
  4. COUMADIN (WARFARIN SODIUM) [Concomitant]
  5. DECARDON (DEXAMETHASONE) [Concomitant]
  6. FLUDROCORTISONE (FLUDROCORTISONE) [Concomitant]
  7. LEVOFLOXACIN (LEVOFLOXACIN) [Concomitant]
  8. LEXAPRO (ESCITALOPRAM OXALATE) [Concomitant]
  9. LIDODERM (LIDOCAINE) [Concomitant]
  10. MIRALAX (MARCROGOL) [Concomitant]
  11. NAMENDA (MEMANTINE HYDROCHLORIDE) [Concomitant]
  12. PRAVACHOL (PRAVASTATIN SODIUM) [Concomitant]
  13. PROCRIT [Concomitant]
  14. SENOKOT (SENNA FRUIT) [Concomitant]
  15. VELCADE (BORTEZOMIB) [Concomitant]
  16. ZOMETA (ZOLEDRONIC ACID) [Concomitant]

REACTIONS (4)
  - Fall [None]
  - Lethargy [None]
  - Confusional state [None]
  - Fatigue [None]
